FAERS Safety Report 9645087 (Version 2)
Quarter: 2014Q3

REPORT INFORMATION
  Report Type: Spontaneous
  Country: US (occurrence: US)
  Receive Date: 20131025
  Receipt Date: 20140807
  Transmission Date: 20150326
  Serious: Yes (Other)
  Sender: FDA-Public Use
  Company Number: US-TEVA-440294USA

PATIENT
  Age: 21 Year
  Sex: Female
  Weight: 49.94 kg

DRUGS (1)
  1. PLAN B ONE-STEP [Suspect]
     Active Substance: LEVONORGESTREL
     Indication: POST COITAL CONTRACEPTION
     Dosage: 1.5 MILLIGRAM DAILY;
     Route: 048
     Dates: start: 20131018, end: 20131018

REACTIONS (3)
  - Metrorrhagia [Unknown]
  - Exposure during pregnancy [Unknown]
  - Pregnancy [Unknown]

NARRATIVE: CASE EVENT DATE: 20131018
